FAERS Safety Report 4290104-9 (Version None)
Quarter: 2004Q1

REPORT INFORMATION
  Report Type: 
  Country: None (occurrence: None)
  Receive Date: 20040210
  Receipt Date: 20031007
  Transmission Date: 20041129
  Serious: Yes (Hospitalization)
  Sender: FDA-Public Use
  Company Number: JP-ROCHE-349331

PATIENT
  Age: 72 Year
  Sex: Female
  Weight: 36 kg

DRUGS (21)
  1. RIVOTRIL [Suspect]
     Indication: PAIN
     Route: 048
     Dates: start: 20031021
  2. ATLIZUMAB [Suspect]
     Indication: RHEUMATOID ARTHRITIS
     Dosage: THE PATIENT WAS WITHDRAWN FROM THE STUDY ON 15 OCT 2003.
     Route: 041
     Dates: start: 20020227, end: 20030822
  3. ATLIZUMAB [Suspect]
     Route: 041
     Dates: start: 20011017, end: 20011207
  4. PREDONINE [Suspect]
     Indication: RHEUMATOID ARTHRITIS
     Route: 048
     Dates: start: 20031017
  5. NORITREN [Suspect]
     Indication: PAIN
     Route: 048
     Dates: start: 20031021
  6. CYTOTEC [Concomitant]
     Dates: start: 20031017
  7. MAGNESIUM OXIDE [Concomitant]
     Dates: start: 20010922
  8. PURSENNID [Concomitant]
     Dates: start: 20010922
  9. INDOMETHACIN [Concomitant]
     Dates: start: 20010922
  10. KETOPROFEN [Concomitant]
     Dosage: DRUG NAME REPORTED AS MILTAX.
     Dates: start: 20010922
  11. MELOXICAM [Concomitant]
     Dosage: DRUG NAME REPORTED AS MOBIC.
     Dates: start: 20010923
  12. VOLTAREN [Concomitant]
     Dates: start: 20010926
  13. FERRO-GRADUMET [Concomitant]
     Dates: start: 20020610
  14. DIAZEPAM [Concomitant]
     Dates: start: 20021025
  15. BONALON [Concomitant]
     Dates: start: 20020610
  16. UNKNOWN DRUG [Concomitant]
     Dosage: DRUG NAME REPORTED AS ZEFNART (LIRANAFTATE).
     Dates: start: 20030823
  17. PANTOSIN [Concomitant]
     Dates: start: 20020626
  18. ENALAPRIL MALEATE [Concomitant]
     Dates: start: 20021025
  19. ASPIRIN [Concomitant]
     Dates: start: 20030531
  20. MECOBALAMIN [Concomitant]
     Dates: start: 20030726
  21. MEVALOTIN [Concomitant]
     Dates: start: 20030628

REACTIONS (6)
  - AORTIC DISSECTION [None]
  - CONTUSION [None]
  - FALL [None]
  - FEMORAL NECK FRACTURE [None]
  - GAIT DISTURBANCE [None]
  - HERPES ZOSTER [None]
